FAERS Safety Report 9208702 (Version 1)
Quarter: 2013Q2

REPORT INFORMATION
  Report Type: Spontaneous
  Country: US (occurrence: US)
  Receive Date: 20130404
  Receipt Date: 20130404
  Transmission Date: 20140414
  Serious: Yes (Hospitalization)
  Sender: FDA-Public Use
  Company Number: US-ACCORD-017025

PATIENT
  Age: 77 Year
  Sex: Male
  Weight: 136.36 kg

DRUGS (8)
  1. MITOMYCIN [Suspect]
     Indication: BLADDER CANCER
     Dosage: MITOMYCIN C 40MG WAS USED
     Route: 043
     Dates: start: 20120831
  2. LOTREL [Concomitant]
     Indication: HYPERTENSION
     Dosage: 10/40 MG
     Route: 048
     Dates: start: 2004
  3. TRICOR [Concomitant]
     Indication: HYPERLIPIDAEMIA
     Route: 048
     Dates: start: 20120103
  4. TOPROL XL [Concomitant]
     Indication: HYPERTENSION
     Route: 048
     Dates: start: 2004, end: 20120923
  5. METFORMIN HYDROCHLORIDE [Concomitant]
     Indication: TYPE 2 DIABETES MELLITUS
     Route: 048
     Dates: start: 201110, end: 20120923
  6. LIPITOR [Concomitant]
     Indication: HYPERLIPIDAEMIA
     Route: 048
     Dates: start: 20120103, end: 20120923
  7. GLUCOTROL XL [Concomitant]
     Indication: TYPE 2 DIABETES MELLITUS
     Route: 048
     Dates: start: 2004, end: 20120923
  8. PROZAC [Concomitant]
     Indication: DEPRESSION
     Route: 048
     Dates: start: 2002, end: 20120601

REACTIONS (3)
  - Sepsis [Recovered/Resolved]
  - Cellulitis [Recovered/Resolved]
  - Off label use [Unknown]
